FAERS Safety Report 14573569 (Version 1)
Quarter: 2018Q1

REPORT INFORMATION
  Report Type: Spontaneous
  Country: US (occurrence: US)
  Receive Date: 20180226
  Receipt Date: 20180226
  Transmission Date: 20180509
  Serious: No
  Sender: FDA-Public Use
  Company Number: US-ALLERGAN-1757274US

PATIENT
  Age: 57 Year
  Sex: Female
  Weight: 29.25 kg

DRUGS (1)
  1. FLUOROMETHOLONE, 0.1% [Suspect]
     Active Substance: FLUOROMETHOLONE
     Indication: HORDEOLUM
     Dosage: UNK
     Route: 047
     Dates: start: 20171004, end: 20171005

REACTIONS (7)
  - Eye irritation [Not Recovered/Not Resolved]
  - Blepharitis [Not Recovered/Not Resolved]
  - Erythema of eyelid [Not Recovered/Not Resolved]
  - Eyelid pain [Not Recovered/Not Resolved]
  - Scleral hyperaemia [Not Recovered/Not Resolved]
  - Eye pruritus [Not Recovered/Not Resolved]
  - Eye inflammation [Not Recovered/Not Resolved]

NARRATIVE: CASE EVENT DATE: 20171004
